FAERS Safety Report 19558013 (Version 2)
Quarter: 2021Q4

REPORT INFORMATION
  Report Type: Report from Study
  Country: US (occurrence: US)
  Receive Date: 20210715
  Receipt Date: 20211109
  Transmission Date: 20220303
  Serious: No
  Sender: FDA-Public Use
  Company Number: US-009507513-2107USA001022

PATIENT
  Age: 65 Year
  Sex: Female

DRUGS (1)
  1. BELSOMRA [Suspect]
     Active Substance: SUVOREXANT
     Indication: Insomnia
     Dosage: 10 MILLIGRAM, QD
     Route: 048

REACTIONS (4)
  - Poor quality sleep [Not Recovered/Not Resolved]
  - Product dose omission issue [Unknown]
  - Insomnia [Not Recovered/Not Resolved]
  - Product dose omission issue [Unknown]

NARRATIVE: CASE EVENT DATE: 20210623
